FAERS Safety Report 7570999-3 (Version None)
Quarter: 2011Q2

REPORT INFORMATION
  Report Type: 
  Country: None (occurrence: None)
  Receive Date: 20110624
  Receipt Date: 20110614
  Transmission Date: 20111010
  Serious: Yes (Hospitalization, Other)
  Sender: FDA-Public Use
  Company Number: FR-ROCHE-765966

PATIENT
  Sex: Female
  Weight: 36.1 kg

DRUGS (22)
  1. VINCRISTINE [Suspect]
     Indication: SARCOMA METASTATIC
     Dosage: C1, C2, C3. FORM: 1.5 MG/M2.LAST DOSE PRIOR TO SAE:16 JUNE 2011
     Route: 042
     Dates: start: 20110302
  2. DACTINOMYCIN [Suspect]
     Dosage: FREQ: 1 DAY
     Route: 042
     Dates: start: 20110616
  3. DOXORUBICIN HCL [Suspect]
     Indication: SARCOMA METASTATIC
     Dosage: FREQUENCY: DAY 1 AND DAY 2. DOSAGE FORM: 30 MG/M2.
     Route: 042
     Dates: start: 20110302
  4. FORLAX [Concomitant]
     Dates: start: 20110302
  5. ORANOR [Concomitant]
     Dosage: TDD: 4 DROPSX 6/ DAY
     Dates: start: 20110312, end: 20110402
  6. FORLAX [Concomitant]
     Dates: start: 20110305
  7. BEVACIZUMAB [Suspect]
     Indication: SARCOMA METASTATIC
     Dosage: FREQUENCY: DAY 1. DOSAGE FORM: 7.5 MG/KG.LAST DOSE PRIOR TO SAE: 16 JUNE 2011
     Route: 042
     Dates: start: 20110302
  8. ACETAMINOPHEN [Concomitant]
     Dosage: TDD: UK
     Dates: start: 20110309
  9. CLONAZEPAM [Concomitant]
     Dosage: TDD: 12 DROPS
     Dates: start: 20110305
  10. ONDANSERTRON HYDROCHLORIDE [Concomitant]
     Dates: start: 20110302
  11. TRANXENE [Concomitant]
     Dates: start: 20110312, end: 20110312
  12. NORDETTE-21 [Concomitant]
     Dosage: TOTAL DAILY DOSE: 1 CP/DAY
     Dates: start: 20110302
  13. FOLEX [Concomitant]
     Dosage: TOTAL DAILY DOSE: 4 SACHETS
     Dates: start: 20110302
  14. LOVENOX [Concomitant]
     Dates: start: 20110301
  15. BEVACIZUMAB [Suspect]
     Dosage: FREQ: 1X/DAY
     Route: 042
     Dates: start: 20110616
  16. IFOSFAMIDE [Suspect]
     Indication: SARCOMA METASTATIC
     Dosage: FREQUENCY: DAY 1- DAY 2. DOSAGE FORM: 3 GR/M2.LAST DOSE PRIOR TO SAE: 17 JUNE 2011
     Route: 042
     Dates: start: 20110302
  17. IFOSFAMIDE [Suspect]
     Dosage: FREQ; 2 DAYS
     Route: 042
     Dates: start: 20110616
  18. VINCRISTINE [Suspect]
     Dosage: FREQ: 1X/DAY
     Route: 042
     Dates: start: 20110616
  19. DACTINOMYCIN [Suspect]
     Indication: SARCOMA METASTATIC
     Dosage: DOSAGE FORM: 1.5MG/M2. LAST DOSE PRIOR TO SAE:16 JUNE 2011
     Route: 042
     Dates: start: 20110302
  20. PREDNISOLONE [Concomitant]
     Dates: start: 20110309, end: 20110315
  21. NORDETTE-21 [Concomitant]
     Dates: start: 20110303
  22. TRAMADOL HCL [Concomitant]
     Dates: start: 20110309, end: 20110313

REACTIONS (5)
  - FEBRILE BONE MARROW APLASIA [None]
  - FEBRILE NEUTROPENIA [None]
  - WEIGHT DECREASED [None]
  - VOMITING [None]
  - MUCOSAL INFLAMMATION [None]
